FAERS Safety Report 10442089 (Version 1)
Quarter: 2014Q3

REPORT INFORMATION
  Report Type: Spontaneous
  Country: BR (occurrence: BR)
  Receive Date: 20140909
  Receipt Date: 20140909
  Transmission Date: 20150326
  Serious: Yes (Other)
  Sender: FDA-Public Use
  Company Number: BR-PFIZER INC-2014247427

PATIENT
  Age: 78 Year
  Weight: 72 kg

DRUGS (3)
  1. BRIMONIDINE TARTRATE. [Concomitant]
     Active Substance: BRIMONIDINE TARTRATE
     Indication: GLAUCOMA
     Dosage: ONE DROP EACH EYE, TWICE A DAY
     Route: 047
     Dates: start: 201407
  2. TIMOLOL [Concomitant]
     Active Substance: TIMOLOL
     Dosage: ONE DROP EACH EYE, TWICE A DAY
     Route: 047
     Dates: start: 2013
  3. XALATAN [Suspect]
     Active Substance: LATANOPROST
     Indication: GLAUCOMA
     Dosage: ONE DROP IN RIGHT EYE, AT NIGHT
     Route: 047
     Dates: start: 201407

REACTIONS (2)
  - Glaucoma [Unknown]
  - Cataract [Unknown]

NARRATIVE: CASE EVENT DATE: 20140808
